FAERS Safety Report 25158716 (Version 1)
Quarter: 2025Q2

REPORT INFORMATION
  Report Type: Spontaneous
  Country: JP (occurrence: JP)
  Receive Date: 20250404
  Receipt Date: 20250404
  Transmission Date: 20250717
  Serious: Yes (Hospitalization, Other)
  Sender: CATALYST PHARMA
  Company Number: JP-CATALYSTPHARMACEUTICALPARTNERS-JP-CATA-25-00466

PATIENT
  Age: 11 Year
  Sex: Male

DRUGS (8)
  1. PERAMPANEL [Suspect]
     Active Substance: PERAMPANEL
     Indication: Severe myoclonic epilepsy of infancy
     Route: 048
  2. PERAMPANEL [Suspect]
     Active Substance: PERAMPANEL
     Route: 048
  3. PERAMPANEL [Suspect]
     Active Substance: PERAMPANEL
     Route: 042
  4. PERAMPANEL [Suspect]
     Active Substance: PERAMPANEL
     Route: 042
  5. UNSPECIFIED INGREDIENT [Concomitant]
     Active Substance: UNSPECIFIED INGREDIENT
     Indication: Product used for unknown indication
     Route: 065
  6. UNSPECIFIED INGREDIENT [Concomitant]
     Active Substance: UNSPECIFIED INGREDIENT
     Indication: Product used for unknown indication
     Route: 065
  7. PHENOBARBITAL [Concomitant]
     Active Substance: PHENOBARBITAL
     Indication: Product used for unknown indication
     Route: 065
  8. UNSPECIFIED INGREDIENT [Concomitant]
     Active Substance: UNSPECIFIED INGREDIENT
     Indication: Product used for unknown indication
     Route: 065

REACTIONS (8)
  - Respiratory symptom [Recovering/Resolving]
  - Streptococcal infection [Recovering/Resolving]
  - Epilepsy [Unknown]
  - Pneumonia aspiration [Recovering/Resolving]
  - Appendicitis [Recovering/Resolving]
  - Somnolence [Recovering/Resolving]
  - Off label use [Unknown]
  - Off label use [Unknown]
